FAERS Safety Report 18564755 (Version 2)
Quarter: 2021Q1

REPORT INFORMATION
  Report Type: Report from Study
  Country: US (occurrence: US)
  Receive Date: 20201201
  Receipt Date: 20210223
  Transmission Date: 20210419
  Serious: Yes (Hospitalization)
  Sender: FDA-Public Use
  Company Number: US-PFIZER INC-2020466048

PATIENT
  Age: 15 Year
  Sex: Male
  Weight: 57.8 kg

DRUGS (6)
  1. METHOTREXATE SODIUM. [Suspect]
     Active Substance: METHOTREXATE SODIUM
     Indication: ACUTE LYMPHOCYTIC LEUKAEMIA
     Dosage: 27.5 MILLIGRAM  TABLET MC8D8, 15, 22, 29
     Route: 048
     Dates: start: 20200908, end: 20201027
  2. PREDNISONE. [Suspect]
     Active Substance: PREDNISONE
     Indication: ACUTE LYMPHOCYTIC LEUKAEMIA
     Dosage: 35 MILLIGRAM, TABLET, BID, MC8D1?5, 29?33
     Route: 048
     Dates: start: 20200901, end: 20201027
  3. METHOTREXATE SODIUM. [Suspect]
     Active Substance: METHOTREXATE SODIUM
     Indication: ACUTE LYMPHOCYTIC LEUKAEMIA
     Dosage: 15 MILLIGRAM, MC7D1
     Route: 037
     Dates: start: 20200901
  4. MERCAPTOPURINE. [Suspect]
     Active Substance: MERCAPTOPURINE
     Indication: ACUTE LYMPHOCYTIC LEUKAEMIA
     Dosage: 90 MG, TABLET QD, MC8D1?35
     Route: 048
     Dates: start: 20200901, end: 20201027
  5. VINCRISTINE SULFATE. [Suspect]
     Active Substance: VINCRISTINE SULFATE
     Indication: ACUTE LYMPHOCYTIC LEUKAEMIA
     Dosage: 2 MILLIGRAM  MC8D1,29
     Route: 042
     Dates: start: 20200901, end: 20201027
  6. INCB018424 [Suspect]
     Active Substance: RUXOLITINIB
     Indication: ACUTE LYMPHOCYTIC LEUKAEMIA
     Dosage: 85 MILLIGRAM, TABLET, BID, MC8 D1?14,29?35
     Route: 048
     Dates: start: 20200901, end: 20201027

REACTIONS (1)
  - Soft tissue infection [Recovered/Resolved]

NARRATIVE: CASE EVENT DATE: 20201027
